FAERS Safety Report 8013066-7 (Version None)
Quarter: 2011Q4

REPORT INFORMATION
  Report Type: 
  Country: None (occurrence: None)
  Receive Date: 20111229
  Receipt Date: 20111215
  Transmission Date: 20120403
  Serious: Yes (Other)
  Sender: FDA-Public Use
  Company Number: JP-SANOFI-AVENTIS-2011SA078317

PATIENT
  Age: 80 Year
  Sex: Male
  Weight: 54 kg

DRUGS (18)
  1. APIDRA SOLOSTAR [Suspect]
     Dosage: 3 UNITS IN THE MORNING, 6 UNITS IN THE DAYTIME AND 3 UNITS IN THE EVENING
     Route: 065
     Dates: start: 20110326, end: 20110403
  2. SOLOSTAR [Suspect]
     Indication: DEVICE THERAPY
  3. LANTUS [Suspect]
     Dosage: DOSE:9 UNIT(S)
     Route: 065
     Dates: start: 20110305, end: 20110308
  4. APIDRA SOLOSTAR [Suspect]
     Dosage: 4 UNITS IN THE MORNING, 4 UNITS IN THE DAYTIME AND 4 UNITS IN THE EVENING DOSE:4 UNIT(S)
     Route: 065
     Dates: start: 20110321, end: 20110321
  5. UBRETID [Concomitant]
     Indication: PROPHYLAXIS
     Route: 048
     Dates: end: 20110406
  6. APIDRA SOLOSTAR [Suspect]
     Dosage: 3 UNITS IN THE MORNING, 3 UNITS IN THE DAYTIME AND 3 UNITS IN THE EVENING DOSE:3 UNIT(S)
     Route: 065
     Dates: start: 20110305, end: 20110308
  7. APIDRA SOLOSTAR [Suspect]
     Route: 065
     Dates: start: 20110404, end: 20110406
  8. LANTUS [Suspect]
     Dosage: DOSE:9 UNIT(S)
     Route: 065
     Dates: start: 20110326, end: 20110403
  9. LASIX [Concomitant]
     Route: 048
     Dates: end: 20110406
  10. LANTUS [Suspect]
     Dosage: DOSE:12 UNIT(S)
     Route: 065
     Dates: start: 20110322, end: 20110325
  11. LANTUS [Suspect]
     Dosage: DOSE:8 UNIT(S)
     Route: 065
     Dates: start: 20110404, end: 20110406
  12. ALL OTHER THERAPEUTIC PRODUCTS [Concomitant]
     Route: 048
     Dates: end: 20110406
  13. APIDRA SOLOSTAR [Suspect]
     Dosage: DOSE:4 UNIT(S)
     Route: 065
     Dates: start: 20110319, end: 20110320
  14. APIDRA SOLOSTAR [Suspect]
     Dosage: 3 UNITS IN THE MORNING, 3 UNITS IN THE DAYTIME AND 3 UNITS IN THE EVENING DOSE:3 UNIT(S)
     Route: 065
     Dates: start: 20110322, end: 20110325
  15. LANSOPRAZOLE [Concomitant]
     Route: 048
     Dates: end: 20110406
  16. IMIDAPRIL HYDROCHLORIDE [Concomitant]
     Route: 048
     Dates: end: 20110406
  17. NITRODERM [Concomitant]
     Dates: end: 20110406
  18. INSULIN HUMAN ISOPHANE [Concomitant]
     Dosage: MORNING:5U, EVENING: 3U
     Dates: start: 20110222, end: 20110304

REACTIONS (5)
  - ANAEMIA [None]
  - THROMBOCYTOPENIA [None]
  - WHITE BLOOD CELL COUNT INCREASED [None]
  - HYPOGLYCAEMIA [None]
  - RESPIRATORY TRACT INFECTION [None]
